FAERS Safety Report 9189213 (Version 1)
Quarter: 2013Q1

REPORT INFORMATION
  Report Type: Spontaneous
  Country: US (occurrence: None)
  Receive Date: 20130321
  Receipt Date: 20130321
  Transmission Date: 20140127
  Serious: Yes (Other)
  Sender: FDA-Public Use
  Company Number: None

PATIENT
  Age: 15 Year
  Sex: Female
  Weight: 47.63 kg

DRUGS (2)
  1. VYVANSE 20 MG SHIRE LLC [Suspect]
     Indication: ATTENTION DEFICIT/HYPERACTIVITY DISORDER
     Dosage: 20 MG DAILY PO
     Route: 048
  2. ESCITALOPRAM [Concomitant]

REACTIONS (2)
  - Psychomotor hyperactivity [None]
  - Mania [None]
